FAERS Safety Report 5509945-2 (Version None)
Quarter: 2007Q4

REPORT INFORMATION
  Report Type: 
  Country: None (occurrence: None)
  Receive Date: 20071108
  Receipt Date: 20071029
  Transmission Date: 20080405
  Serious: Yes (Hospitalization, Other)
  Sender: FDA-Public Use
  Company Number: PHBS2000AU04068

PATIENT
  Age: 31 Year
  Sex: Male

DRUGS (4)
  1. LITHIUM CARBONATE [Concomitant]
     Dosage: 1 G, QD
     Route: 065
  2. CLOZARIL [Suspect]
     Indication: SCHIZOPHRENIA
     Dosage: UP TO 750 MG/DAY
     Route: 048
     Dates: start: 19950129, end: 20000605
  3. CLOZARIL [Suspect]
     Dosage: 750MG
     Route: 048
     Dates: start: 20060320
  4. OLANZAPINE [Concomitant]

REACTIONS (8)
  - CARDIOMYOPATHY [None]
  - DILATATION VENTRICULAR [None]
  - ECHOCARDIOGRAM ABNORMAL [None]
  - ELECTROCARDIOGRAM ABNORMAL [None]
  - LEFT ATRIAL DILATATION [None]
  - LEFT VENTRICULAR DYSFUNCTION [None]
  - RIGHT VENTRICULAR DYSFUNCTION [None]
  - VENTRICULAR HYPOKINESIA [None]
